FAERS Safety Report 20751749 (Version 1)
Quarter: 2022Q2

REPORT INFORMATION
  Report Type: Spontaneous
  Country: HN (occurrence: HN)
  Receive Date: 20220426
  Receipt Date: 20220426
  Transmission Date: 20220721
  Serious: Yes (Death, Hospitalization)
  Sender: FDA-Public Use
  Company Number: HN-NOVARTISPH-NVSC2022HN052856

PATIENT
  Sex: Male

DRUGS (1)
  1. GLIVEC [Suspect]
     Active Substance: IMATINIB MESYLATE
     Indication: Chronic myeloid leukaemia
     Dosage: 400 MG (1X400 MG)
     Route: 065

REACTIONS (9)
  - Pain [Fatal]
  - Multi-organ disorder [Fatal]
  - Liver injury [Unknown]
  - Gastrointestinal infection [Unknown]
  - Spleen disorder [Unknown]
  - Malnutrition [Unknown]
  - Anaemia [Unknown]
  - Pyrexia [Unknown]
  - Drug ineffective [Unknown]
